FAERS Safety Report 12252647 (Version 1)
Quarter: 2016Q2

REPORT INFORMATION
  Report Type: Spontaneous
  Country: US (occurrence: US)
  Receive Date: 20160411
  Receipt Date: 20160411
  Transmission Date: 20160815
  Serious: No
  Sender: FDA-Public Use
  Company Number: US-PFIZER INC-2016183363

PATIENT
  Age: 47 Year
  Sex: Male
  Weight: 132 kg

DRUGS (2)
  1. CHANTIX [Suspect]
     Active Substance: VARENICLINE TARTRATE
     Dosage: ONE PILL AT NIGHT THREE TIME
     Dates: start: 201512
  2. CHANTIX [Suspect]
     Active Substance: VARENICLINE TARTRATE
     Dosage: A PILL IN MORNING AND A PILL AT NIGHT

REACTIONS (2)
  - Visual impairment [Unknown]
  - Drug ineffective [Unknown]
